FAERS Safety Report 15479390 (Version 1)
Quarter: 2018Q4

REPORT INFORMATION
  Report Type: Spontaneous
  Country: SE (occurrence: SE)
  Receive Date: 20181009
  Receipt Date: 20181009
  Transmission Date: 20190205
  Serious: Yes (Other)
  Sender: FDA-Public Use
  Company Number: SE-TEVA-2018-SE-962467

PATIENT
  Age: 93 Year
  Sex: Female

DRUGS (7)
  1. ALENDRONIC ACID [Suspect]
     Active Substance: ALENDRONIC ACID
     Indication: OSTEOPOROSIS
     Route: 048
     Dates: start: 201711
  2. MINIDERM [Concomitant]
     Route: 065
  3. VISCOTERS [Concomitant]
     Route: 065
  4. CALCICHEW [Concomitant]
     Active Substance: CALCIUM CARBONATE
     Route: 065
  5. XALCOM [Concomitant]
     Active Substance: LATANOPROST\TIMOLOL
     Route: 065
  6. ENALAPRIL [Concomitant]
     Active Substance: ENALAPRIL
     Route: 065
  7. PREDNISOLON [Concomitant]
     Active Substance: PREDNISOLONE
     Route: 065

REACTIONS (2)
  - Osteonecrosis of jaw [Not Recovered/Not Resolved]
  - Osteomyelitis [Not Recovered/Not Resolved]

NARRATIVE: CASE EVENT DATE: 20180807
